FAERS Safety Report 17030002 (Version 1)
Quarter: 2019Q4

REPORT INFORMATION
  Report Type: Spontaneous
  Country: US (occurrence: US)
  Receive Date: 20191114
  Receipt Date: 20191114
  Transmission Date: 20200122
  Serious: Yes (Life-Threatening, Hospitalization)
  Sender: FDA-Public Use
  Company Number: US-SUN PHARMACEUTICAL INDUSTRIES LTD-2019R1-226994

PATIENT
  Age: 15 Year
  Sex: Female

DRUGS (1)
  1. AMLODIPINE [Suspect]
     Active Substance: AMLODIPINE BESYLATE
     Indication: PRODUCT USED FOR UNKNOWN INDICATION
     Dosage: UNK
     Route: 065

REACTIONS (10)
  - Multiple organ dysfunction syndrome [Unknown]
  - Swollen tongue [Unknown]
  - Shock [Unknown]
  - Accidental exposure to product [Not Recovered/Not Resolved]
  - Circulatory collapse [Unknown]
  - Vomiting [Not Recovered/Not Resolved]
  - Respiratory distress [Unknown]
  - Lactic acidosis [Unknown]
  - Renal failure [Unknown]
  - Respiratory failure [Unknown]
